FAERS Safety Report 9674636 (Version 1)
Quarter: 2013Q4

REPORT INFORMATION
  Report Type: Spontaneous
  Country: FR (occurrence: FR)
  Receive Date: 20131107
  Receipt Date: 20131107
  Transmission Date: 20140711
  Serious: Yes (Hospitalization)
  Sender: FDA-Public Use
  Company Number: FR-JNJFOC-20131100151

PATIENT
  Age: 95 Year
  Sex: Female

DRUGS (11)
  1. PEVARYL [Suspect]
     Indication: VULVOVAGINAL MYCOTIC INFECTION
     Route: 065
     Dates: start: 20130911, end: 20130913
  2. FLUCONAZOLE [Suspect]
     Indication: VULVOVAGINAL MYCOTIC INFECTION
     Route: 048
     Dates: start: 20130911, end: 20130913
  3. LEVOTHYROX [Concomitant]
     Route: 065
  4. KARDEGIC [Concomitant]
     Route: 065
  5. AMLOR [Concomitant]
     Route: 065
  6. ATHYMIL [Concomitant]
     Route: 065
  7. RISPERDAL [Concomitant]
     Route: 065
  8. TRANSIPEG [Concomitant]
     Route: 065
  9. DOLIPRANE [Concomitant]
     Route: 065
  10. FORTIMEL [Concomitant]
     Route: 065
  11. EBIXA [Concomitant]
     Route: 065

REACTIONS (2)
  - Rash morbilliform [Recovered/Resolved]
  - Toxic skin eruption [Recovered/Resolved]
